FAERS Safety Report 5307647-9 (Version None)
Quarter: 2007Q2

REPORT INFORMATION
  Report Type: 
  Country: None (occurrence: None)
  Receive Date: 20070425
  Receipt Date: 20070417
  Transmission Date: 20071010
  Serious: Yes (Hospitalization, Disabling, Other)
  Sender: FDA-Public Use
  Company Number: FR-PFIZER INC-2007017201

PATIENT
  Sex: Female
  Weight: 54 kg

DRUGS (4)
  1. LYRICA [Suspect]
     Indication: INTERVERTEBRAL DISC PROTRUSION
     Route: 048
     Dates: start: 20070303, end: 20070303
  2. LYRICA [Suspect]
     Indication: CERVICAL ROOT PAIN
  3. CELESTENE [Concomitant]
     Indication: CERVICAL ROOT PAIN
     Dosage: DAILY DOSE:12MG
     Route: 048
     Dates: start: 20070221, end: 20070228
  4. MYOLASTAN [Concomitant]
     Indication: MUSCLE RELAXANT THERAPY
     Route: 048
     Dates: start: 20070215

REACTIONS (3)
  - ARTHRALGIA [None]
  - COORDINATION ABNORMAL [None]
  - GAIT DISTURBANCE [None]
